FAERS Safety Report 15116737 (Version 1)
Quarter: 2018Q3

REPORT INFORMATION
  Report Type: Spontaneous
  Country: DK (occurrence: DK)
  Receive Date: 20180706
  Receipt Date: 20180706
  Transmission Date: 20181010
  Serious: Yes (Life-Threatening, Hospitalization)
  Sender: FDA-Public Use
  Company Number: DK-TEVA-2018-DK-922116

PATIENT
  Age: 43 Year
  Sex: Female

DRUGS (17)
  1. QUETIAPIN ^ACTAVIS^ [Suspect]
     Active Substance: QUETIAPINE FUMARATE
     Indication: BIPOLAR DISORDER
     Dosage: 50 MILLIGRAM DAILY; STYRKE: 25 MG,
     Route: 048
     Dates: start: 20160202
  2. LITHIUM. [Concomitant]
     Active Substance: LITHIUM
     Indication: MOOD SWINGS
     Dosage: 1350 MILLIGRAM DAILY; STYRKE: 300 MG (8,1 MOL LI+).
     Route: 048
     Dates: start: 20150928
  3. TRAMADOL. [Concomitant]
     Active Substance: TRAMADOL
     Indication: PAIN
     Dosage: 200 MILLIGRAM DAILY; STYRKE: 100 MG.
     Route: 048
     Dates: start: 20170726, end: 20180516
  4. ELTROXIN [Concomitant]
     Active Substance: LEVOTHYROXINE
     Indication: HYPOTHYROIDISM
     Dosage: 100 MICROGRAM DAILY; STYRKE: 100 MIKROGRAM.
     Route: 048
     Dates: start: 20151005
  5. ATENODAN [Concomitant]
     Indication: HYPERTENSION
     Dosage: 25 MILLIGRAM DAILY; STYRKE: 25 MG.
     Route: 048
     Dates: start: 20150928
  6. PINEX [Concomitant]
     Active Substance: ACETAMINOPHEN
     Indication: PAIN
     Dosage: STYRKE: 500 MG. DOSIS: 2 TABLETTER EFTER BEHOV.
     Route: 048
     Dates: start: 20160123, end: 20180418
  7. EZETROL [Concomitant]
     Active Substance: EZETIMIBE
     Indication: HYPERCHOLESTEROLAEMIA
     Dosage: 10 MILLIGRAM DAILY; STYRKE: 10 MG.
     Route: 048
     Dates: start: 20161208
  8. RIVOTRIL [Concomitant]
     Active Substance: CLONAZEPAM
     Indication: BIPOLAR DISORDER
     Dosage: 1 MILLIGRAM DAILY; STYRKE: 0,5 MG.
     Route: 048
     Dates: start: 20160203
  9. GLYTRIN [Concomitant]
     Indication: ANGINA PECTORIS
     Dosage: STYRKE: 0,4 MG/DOSIS. DOSIS: 1 PUST EFTER BEHOV, H?JST 3 GANGE DAGLIGT.
     Route: 060
     Dates: start: 20161206
  10. QUETIAPIN ^ACCORD^ [Suspect]
     Active Substance: QUETIAPINE
     Indication: BIPOLAR DISORDER
     Dosage: 600 MILLIGRAM DAILY; STYRKE: 300 MG.
     Route: 048
     Dates: start: 20160202
  11. METFORMIN [Concomitant]
     Active Substance: METFORMIN HYDROCHLORIDE
     Indication: TYPE 2 DIABETES MELLITUS
     Dosage: 1000 MILLIGRAM DAILY; STYRKE: 500 MG.
     Route: 048
     Dates: start: 20160228
  12. ATORVASTATIN [Concomitant]
     Active Substance: ATORVASTATIN
     Indication: HYPERCHOLESTEROLAEMIA
     Dosage: 80 MILLIGRAM DAILY; STYRKE: 80 MG.
     Route: 048
     Dates: start: 20161206
  13. PANTOPRAZOLE [Concomitant]
     Active Substance: PANTOPRAZOLE
     Indication: PROPHYLAXIS AGAINST GASTROINTESTINAL ULCER
     Dosage: 20 MILLIGRAM DAILY; STYRKE: 20 MG.
     Route: 048
     Dates: start: 20150928
  14. VIBEDEN [Concomitant]
     Indication: VITAMIN B12 DEFICIENCY
     Dosage: STYRKE: 1 MG/ML.
     Route: 030
     Dates: start: 20151005
  15. ACETYLSALICYLIC ACID [Concomitant]
     Active Substance: ASPIRIN
     Indication: THROMBOSIS PROPHYLAXIS
     Dosage: 75 MILLIGRAM DAILY;
     Route: 048
     Dates: start: 20161205
  16. DELEPSINE RETARD [Concomitant]
     Active Substance: VALPROATE SODIUM
     Indication: MOOD SWINGS
     Dosage: 1000 MILLIGRAM DAILY; STYRKE: 500 MG.
     Route: 048
     Dates: start: 20160902
  17. ALIROCUMAB [Concomitant]
     Active Substance: ALIROCUMAB
     Indication: HYPERCHOLESTEROLAEMIA
     Dosage: STYRKE: 75 MG.
     Route: 058
     Dates: start: 20170920

REACTIONS (2)
  - Pancreatitis acute [Unknown]
  - Hypertriglyceridaemia [Unknown]

NARRATIVE: CASE EVENT DATE: 201805
